FAERS Safety Report 21642768 (Version 3)
Quarter: 2023Q1

REPORT INFORMATION
  Report Type: Spontaneous
  Country: US (occurrence: US)
  Receive Date: 20221125
  Receipt Date: 20230120
  Transmission Date: 20230418
  Serious: No
  Sender: FDA-Public Use
  Company Number: US-SA-SAC20221123000552

PATIENT
  Age: 31 Year
  Sex: Female
  Weight: 104 kg

DRUGS (1)
  1. DUPIXENT [Suspect]
     Active Substance: DUPILUMAB
     Indication: Asthma
     Dosage: 300 MG, FREQUENCY: OTHER
     Route: 058
     Dates: start: 20220922, end: 20221202

REACTIONS (3)
  - Injection site pain [Unknown]
  - Injection site scar [Unknown]
  - Injection site erythema [Unknown]
